APPROVED DRUG PRODUCT: DEXMETHYLPHENIDATE HYDROCHLORIDE
Active Ingredient: DEXMETHYLPHENIDATE HYDROCHLORIDE
Strength: 2.5MG
Dosage Form/Route: TABLET;ORAL
Application: A077107 | Product #003
Applicant: TEVA PHARMACEUTICALS USA
Approved: Jan 29, 2007 | RLD: No | RS: No | Type: DISCN